FAERS Safety Report 5840044-6 (Version None)
Quarter: 2008Q3

REPORT INFORMATION
  Report Type: 
  Country: None (occurrence: None)
  Receive Date: 20080811
  Receipt Date: 20071031
  Transmission Date: 20090109
  Serious: Yes (Disabling)
  Sender: FDA-Public Use
  Company Number: US-BAYER-200715039GDS

PATIENT
  Age: 42 Year
  Sex: Female

DRUGS (1)
  1. APROTININ [Suspect]
     Indication: SURGERY
     Route: 065

REACTIONS (2)
  - RENAL ARTERY THROMBOSIS [None]
  - RENAL FAILURE ACUTE [None]
